FAERS Safety Report 18604414 (Version 5)
Quarter: 2023Q1

REPORT INFORMATION
  Report Type: Report from Study
  Country: CA (occurrence: CA)
  Receive Date: 20201211
  Receipt Date: 20230102
  Transmission Date: 20230417
  Serious: Yes (Disabling)
  Sender: FDA-Public Use
  Company Number: CA-KOREA IPSEN PHARMA-2020-14835

PATIENT
  Age: 53 Year
  Sex: Male

DRUGS (15)
  1. LANREOTIDE ACETATE [Suspect]
     Active Substance: LANREOTIDE ACETATE
     Indication: Neuroendocrine tumour
     Dosage: EVERY 29 DAYS
     Route: 058
     Dates: start: 20170913
  2. LANREOTIDE ACETATE [Suspect]
     Active Substance: LANREOTIDE ACETATE
     Route: 058
     Dates: start: 20170913
  3. HYDROMORPHONE [Concomitant]
     Active Substance: HYDROMORPHONE
  4. PROCHLORAZINE [Concomitant]
  5. LOPERAMIDE [Concomitant]
     Active Substance: LOPERAMIDE
     Dosage: 1-2 TABS MAXIMUM 8 PER DAYS
  6. HYDROMORPHONE [Concomitant]
     Active Substance: HYDROMORPHONE
  7. SYNTHROID [Concomitant]
     Active Substance: LEVOTHYROXINE SODIUM
  8. PANTOPRAZOLE SODIUM [Concomitant]
     Active Substance: PANTOPRAZOLE SODIUM
  9. LYRICA [Concomitant]
     Active Substance: PREGABALIN
  10. CHOLECALCIFEROL [Concomitant]
     Active Substance: CHOLECALCIFEROL
  11. AMITRIPTYLINE [Concomitant]
     Active Substance: AMITRIPTYLINE
  12. CORTEF [Concomitant]
     Active Substance: HYDROCORTISONE
  13. PAROXETINE [Concomitant]
     Active Substance: PAROXETINE
  14. Testost gel [Concomitant]
  15. ATIVAN [Concomitant]
     Active Substance: LORAZEPAM
     Dosage: 1 MG S/L PO PRN

REACTIONS (6)
  - Nausea [Not Recovered/Not Resolved]
  - Headache [Not Recovered/Not Resolved]
  - Fatigue [Not Recovered/Not Resolved]
  - Vomiting [Recovered/Resolved]
  - Injection site discomfort [Recovered/Resolved]
  - Injection site pain [Recovered/Resolved]

NARRATIVE: CASE EVENT DATE: 20180502
